FAERS Safety Report 4733404-8 (Version None)
Quarter: 2005Q3

REPORT INFORMATION
  Report Type: 
  Country: None (occurrence: None)
  Receive Date: 20050729
  Receipt Date: 20050714
  Transmission Date: 20060218
  Serious: Yes (Hospitalization)
  Sender: FDA-Public Use
  Company Number: WAES 0507DEU00130

PATIENT
  Age: 75 Year
  Sex: Female

DRUGS (4)
  1. FOSAMAX [Suspect]
     Dosage: 70 MG/WKY, PO
     Route: 048
     Dates: start: 20050427
  2. CALCIUM CARBONATE [Concomitant]
  3. CHOLECALCIFEROL [Concomitant]
  4. IBANDRONATE SODIUM [Concomitant]

REACTIONS (1)
  - NEPHROLITHIASIS [None]
